FAERS Safety Report 17367833 (Version 1)
Quarter: 2020Q1

REPORT INFORMATION
  Report Type: Spontaneous
  Country: US (occurrence: US)
  Receive Date: 20200203
  Receipt Date: 20200203
  Transmission Date: 20200409
  Serious: Yes (Other)
  Sender: FDA-Public Use
  Company Number: None

PATIENT
  Age: 7 Year
  Sex: Female
  Weight: 31.05 kg

DRUGS (5)
  1. MONTELUKAST SODIUM 5 MG [Suspect]
     Active Substance: MONTELUKAST SODIUM
     Indication: HYPERSENSITIVITY
     Route: 048
     Dates: start: 20180601, end: 20191226
  2. ZYRTEC [Concomitant]
     Active Substance: CETIRIZINE HYDROCHLORIDE
  3. QVAR [Concomitant]
     Active Substance: BECLOMETHASONE DIPROPIONATE
  4. FLUTICASONE. [Concomitant]
     Active Substance: FLUTICASONE
  5. MONTELUKAST SODIUM 5 MG [Suspect]
     Active Substance: MONTELUKAST SODIUM
     Indication: ASTHMA
     Route: 048
     Dates: start: 20180601, end: 20191226

REACTIONS (6)
  - Anxiety [None]
  - Mood altered [None]
  - Nightmare [None]
  - Suicidal ideation [None]
  - Sleep terror [None]
  - Withdrawal syndrome [None]

NARRATIVE: CASE EVENT DATE: 20180801
